FAERS Safety Report 4566874-9 (Version None)
Quarter: 2005Q1

REPORT INFORMATION
  Report Type: 
  Country: None (occurrence: None)
  Receive Date: 20050201
  Receipt Date: 20020418
  Transmission Date: 20050727
  Serious: Yes (Other)
  Sender: FDA-Public Use
  Company Number: US-BRISTOL-MYERS SQUIBB COMPANY-11842531

PATIENT
  Age: 34 Year
  Sex: Female

DRUGS (3)
  1. STADOL [Suspect]
     Indication: MIGRAINE
     Route: 045
     Dates: start: 19940501, end: 20001001
  2. LORCET-HD [Concomitant]
  3. AMITRIPTYLINE HCL [Concomitant]

REACTIONS (5)
  - ASTHENIA [None]
  - DEPENDENCE [None]
  - DIZZINESS [None]
  - DYSPNOEA [None]
  - PALPITATIONS [None]
